FAERS Safety Report 4629375-5 (Version None)
Quarter: 2005Q2

REPORT INFORMATION
  Report Type: 
  Country: None (occurrence: None)
  Receive Date: 20050405
  Receipt Date: 20050329
  Transmission Date: 20051028
  Serious: Yes (Hospitalization)
  Sender: FDA-Public Use
  Company Number: DEWYE537529MAR05

PATIENT
  Age: 85 Year
  Sex: Male

DRUGS (9)
  1. LORAZEPAM [Suspect]
     Dosage: 6 TABLETS OF 1MG (OVERDOSE AMOUNT 6MG)
     Route: 048
     Dates: start: 20050325, end: 20030325
  2. ASPIRIN [Suspect]
     Dosage: 3 TABLETS 100MG EACH (OVERDOSE AMOUNT 300MG)
     Route: 048
     Dates: start: 20050325, end: 20050325
  3. ATACAND [Suspect]
     Dosage: OVERDOSE AMOUNT 24MG
     Route: 048
     Dates: start: 20050325, end: 20050325
  4. ATORVASTATIN CALCIUM [Suspect]
     Dosage: 4 TABLETS 20MG EACH (OVERDOSE AMOUNT 80MG)
     Route: 048
     Dates: start: 20050325, end: 20050325
  5. MARCUMAR [Suspect]
     Dosage: 5 TABLETS 3MG EACH (OVERDOSE AMOUNT 15MG)
     Route: 048
     Dates: start: 20050325, end: 20050325
  6. PANTOZOL (PANTOPRAZOLE) [Suspect]
     Dosage: OVERDOSE AMOUNT 100MG
     Route: 048
     Dates: start: 20050325, end: 20050325
  7. SOTALOL HCL [Suspect]
     Dosage: UNKNOWN AMOUNT
     Route: 048
     Dates: start: 20050325, end: 20050325
  8. TRI.-THIAZID (HYDROCHLOROTHIAZIDE/TRIAMTERENE) [Suspect]
     Dosage: 4 TABLETS OF  UNKNOWN AMOUNT
     Route: 048
     Dates: start: 20050325, end: 20050325
  9. PHENYTOIN [Suspect]
     Dosage: 12 TABLETS OF UNKNOWN AMOUNT
     Route: 048
     Dates: start: 20050325, end: 20050325

REACTIONS (4)
  - BRADYCARDIA [None]
  - HYPOTENSION [None]
  - INTENTIONAL MISUSE [None]
  - SOMNOLENCE [None]
